FAERS Safety Report 4493226-2 (Version None)
Quarter: 2004Q4

REPORT INFORMATION
  Report Type: 
  Country: None (occurrence: None)
  Receive Date: 20041029
  Receipt Date: 20041012
  Transmission Date: 20050328
  Serious: Yes (Hospitalization)
  Sender: FDA-Public Use
  Company Number: CART-10297

PATIENT
  Age: 29 Year
  Sex: Male
  Weight: 79.3795 kg

DRUGS (1)
  1. CARTICEL [Suspect]
     Dosage: 1 NA ONCE IS
     Dates: start: 20010619, end: 20010619

REACTIONS (6)
  - DECREASED ACTIVITY [None]
  - GRAFT OVERGROWTH [None]
  - HYPERTROPHY [None]
  - PAIN [None]
  - PATELLOFEMORAL PAIN SYNDROME [None]
  - SCAR [None]
